FAERS Safety Report 8578153-3 (Version None)
Quarter: 2012Q2

REPORT INFORMATION
  Report Type: 
  Country: None (occurrence: None)
  Receive Date: 20120423
  Receipt Date: 20100205
  Transmission Date: 20120825
  Serious: Yes (Hospitalization)
  Sender: FDA-Public Use
  Company Number: PHHY2010US07160

PATIENT
  Age: 22 Year
  Sex: Female
  Weight: 60 kg

DRUGS (7)
  1. EXJADE [Suspect]
     Indication: IRON OVERLOAD
     Dosage: 500 , BID, ORAL
     Route: 048
     Dates: start: 20091101, end: 20100101
  2. ENALAPRIL MALEATE [Concomitant]
  3. PHENERGAN HCL [Concomitant]
  4. PREDNISONE TAB [Concomitant]
  5. FOLIC ACID [Concomitant]
  6. METOPROLOL TARTRATE [Concomitant]
  7. HYDREA [Concomitant]

REACTIONS (2)
  - SICKLE CELL ANAEMIA WITH CRISIS [None]
  - ASPARTATE AMINOTRANSFERASE INCREASED [None]
